FAERS Safety Report 23668756 (Version 1)
Quarter: 2024Q1

REPORT INFORMATION
  Report Type: Spontaneous
  Country: ES (occurrence: ES)
  Receive Date: 20240325
  Receipt Date: 20240325
  Transmission Date: 20240410
  Serious: Yes (Other)
  Sender: FDA-Public Use
  Company Number: ES-BIOVITRUM-2024-ES-004534

PATIENT
  Sex: Female

DRUGS (1)
  1. AVATROMBOPAG [Suspect]
     Active Substance: AVATROMBOPAG
     Indication: Immune thrombocytopenia

REACTIONS (4)
  - Platelet count abnormal [Recovered/Resolved]
  - Platelet count decreased [Recovered/Resolved]
  - Platelet count increased [Recovered/Resolved]
  - Myelofibrosis [Unknown]
